FAERS Safety Report 18867766 (Version 3)
Quarter: 2021Q1

REPORT INFORMATION
  Report Type: Report from Study
  Country: US (occurrence: US)
  Receive Date: 20210209
  Receipt Date: 20210226
  Transmission Date: 20210420
  Serious: Yes (Hospitalization)
  Sender: FDA-Public Use
  Company Number: US-INSMED, INC.-US-INS-21-00147

PATIENT
  Age: 79 Year
  Sex: Female

DRUGS (3)
  1. ARIKAYCE [Suspect]
     Active Substance: AMIKACIN
     Indication: MYCOBACTERIUM AVIUM COMPLEX INFECTION
     Dosage: 590 MILLIGRAM, QD
     Route: 055
     Dates: start: 20210110, end: 20210115
  2. ARIKAYCE [Suspect]
     Active Substance: AMIKACIN
     Dosage: 590 MILLIGRAM
     Route: 055
     Dates: start: 20210117, end: 20210118
  3. ARIKAYCE [Suspect]
     Active Substance: AMIKACIN
     Dosage: 590 MILLIGRAM
     Route: 055
     Dates: start: 202101, end: 20210130

REACTIONS (16)
  - Heart rate increased [Recovered/Resolved]
  - Oropharyngeal pain [Unknown]
  - Therapy interrupted [Unknown]
  - Asthenia [Unknown]
  - Diarrhoea [Unknown]
  - Hospitalisation [Unknown]
  - Anal incontinence [Not Recovered/Not Resolved]
  - Dysphonia [Recovered/Resolved]
  - Throat irritation [Not Recovered/Not Resolved]
  - Anxiety [Unknown]
  - Dyspnoea [Recovered/Resolved]
  - Cough [Not Recovered/Not Resolved]
  - Product dose omission issue [Unknown]
  - Chest discomfort [Recovered/Resolved]
  - Drug dose omission by device [Unknown]
  - Device use error [Unknown]

NARRATIVE: CASE EVENT DATE: 202101
